FAERS Safety Report 9885165 (Version 2)
Quarter: 2014Q2

REPORT INFORMATION
  Report Type: Report from Study
  Country: MX (occurrence: MX)
  Receive Date: 20140210
  Receipt Date: 20140529
  Transmission Date: 20141212
  Serious: Yes (Death, Hospitalization, Other)
  Sender: FDA-Public Use
  Company Number: PHHY2014MX015308

PATIENT
  Age: 55 Year
  Sex: Male

DRUGS (9)
  1. GLIVEC [Suspect]
     Indication: ACUTE LYMPHOCYTIC LEUKAEMIA
     Dosage: 600 MG, UNK
  2. MERCAPTOPURINA [Concomitant]
     Dosage: UNK UKN, UNK
     Dates: start: 20130313
  3. MERCAPTOPURINA [Concomitant]
     Dosage: 50 MG, QD (EVERY 24 HOURS)
  4. METOTREXATE [Concomitant]
     Dosage: UNK UKN, UNK
     Dates: start: 20130314
  5. VINCRISTINA [Concomitant]
     Dosage: UNK UKN, UNK
     Dates: start: 20130314
  6. PREDNISONA [Concomitant]
     Dosage: UNK UKN, UNK
     Dates: start: 20130314
  7. PURINETHOL [Concomitant]
     Dosage: UNK UKN, UNK
  8. FERVAL [Concomitant]
     Dosage: UNK UKN, UNK
  9. FOLIC ACID [Concomitant]
     Dosage: UNK UKN, UNK

REACTIONS (9)
  - Pneumonia [Fatal]
  - Pyrexia [Unknown]
  - Neutropenia [Unknown]
  - Restrictive pulmonary disease [Not Recovered/Not Resolved]
  - Diastolic dysfunction [Not Recovered/Not Resolved]
  - Anaemia [Not Recovered/Not Resolved]
  - Feeling abnormal [Unknown]
  - General physical health deterioration [Unknown]
  - Hyperbilirubinaemia [Not Recovered/Not Resolved]
